FAERS Safety Report 6968401-5 (Version None)
Quarter: 2010Q3

REPORT INFORMATION
  Report Type: 
  Country: None (occurrence: None)
  Receive Date: 20100907
  Receipt Date: 20100827
  Transmission Date: 20110219
  Serious: Yes (Death)
  Sender: FDA-Public Use
  Company Number: JP-ROCHE-724316

PATIENT
  Age: 63 Year
  Sex: Female

DRUGS (4)
  1. HERCEPTIN [Suspect]
     Indication: BREAST CANCER
     Route: 041
     Dates: start: 20100507, end: 20100507
  2. HERCEPTIN [Suspect]
     Dosage: DOSE LOWERED
     Route: 041
     Dates: end: 20100709
  3. TAXOTERE [Suspect]
     Indication: BREAST CANCER
     Dosage: DOSE IS UNCERTAIN
     Route: 041
  4. ENDOXAN [Suspect]
     Indication: BREAST CANCER
     Dosage: DOSEAGE IS UNCERTAIN, FORM UNCERTAINLY.
     Route: 065

REACTIONS (1)
  - INTERSTITIAL LUNG DISEASE [None]
